FAERS Safety Report 11160215 (Version 1)
Quarter: 2015Q2

REPORT INFORMATION
  Report Type: Spontaneous
  Country: JP (occurrence: JP)
  Receive Date: 20150603
  Receipt Date: 20150603
  Transmission Date: 20150821
  Serious: Yes (Hospitalization, Other)
  Sender: FDA-Public Use
  Company Number: JP-MYLANLABS-2015M1017777

PATIENT

DRUGS (2)
  1. WARFARIN SODIUM. [Suspect]
     Active Substance: WARFARIN SODIUM
     Indication: CEREBRAL INFARCTION
     Dosage: STARTED 5 MG AND CONTINUED AT 1 MG
     Route: 048
     Dates: start: 1999
  2. GIMERACIL W/OTERACIL POTASSIUM/TEGAFUR [Interacting]
     Active Substance: GIMERACIL\OTERACIL\TEGAFUR
     Indication: GINGIVAL CANCER
     Dosage: 120 MG / DAY
     Route: 048

REACTIONS (3)
  - Drug interaction [Recovered/Resolved]
  - International normalised ratio increased [Recovered/Resolved]
  - Prothrombin time prolonged [Recovered/Resolved]
